FAERS Safety Report 16958594 (Version 4)
Quarter: 2020Q1

REPORT INFORMATION
  Report Type: Report from Study
  Country: US (occurrence: US)
  Receive Date: 20191024
  Receipt Date: 20200211
  Transmission Date: 20200409
  Serious: Yes (Life-Threatening, Hospitalization, Other)
  Sender: FDA-Public Use
  Company Number: US-BRISTOL-MYERS SQUIBB COMPANY-BMS-2019-097826

PATIENT
  Age: 53 Year
  Sex: Female
  Weight: 71.6 kg

DRUGS (4)
  1. IPILIMUMAB [Suspect]
     Active Substance: IPILIMUMAB
     Indication: BREAST CANCER
     Dosage: 1 MG/KG OVER 90 MINUTES ON DAY 1
     Route: 042
     Dates: start: 20181204
  2. ENTINOSTAT [Suspect]
     Active Substance: ENTINOSTAT
     Indication: BREAST CANCER
     Dosage: 5 MG ON DAY 14 AND DAY 7
     Route: 048
     Dates: start: 20181204
  3. ENTINOSTAT [Suspect]
     Active Substance: ENTINOSTAT
     Indication: PRODUCT USED FOR UNKNOWN INDICATION
     Dosage: 3 MG ON DAYS 1, 8, 15, 22, 29 AND 36
     Route: 048
     Dates: end: 20190923
  4. NIVOLUMAB [Suspect]
     Active Substance: NIVOLUMAB
     Indication: BREAST CANCER
     Dosage: 3 MG/KG OVER 60 MINUTES ON DAY 1, 15, AND 29
     Route: 042
     Dates: start: 20181204

REACTIONS (10)
  - Somnolence [Recovered/Resolved]
  - Lymphocyte count decreased [Recovered/Resolved]
  - Hyperglycaemia [Recovered/Resolved]
  - Upper respiratory tract infection [Unknown]
  - Hypoglycaemia [Unknown]
  - Anaemia [Recovered/Resolved]
  - Acidosis [Recovered/Resolved]
  - Oesophagitis [Unknown]
  - Myocardial infarction [Recovered/Resolved]
  - Hypotension [Recovered/Resolved]

NARRATIVE: CASE EVENT DATE: 20190929
